FAERS Safety Report 9285743 (Version 1)
Quarter: 2013Q2

REPORT INFORMATION
  Report Type: Spontaneous
  Country: FR (occurrence: FR)
  Receive Date: 20130513
  Receipt Date: 20130513
  Transmission Date: 20140414
  Serious: Yes (Other)
  Sender: FDA-Public Use
  Company Number: FR-SANOFI-AVENTIS-2013SA045539

PATIENT
  Age: 11 Year
  Sex: Male
  Weight: 48 kg

DRUGS (6)
  1. LASILIX [Suspect]
     Indication: HYPERCALCAEMIA
     Route: 042
     Dates: start: 20130328, end: 20130328
  2. LASILIX [Suspect]
     Indication: HYPERCALCAEMIA
     Route: 040
     Dates: start: 20130329, end: 20130329
  3. LASILIX [Suspect]
     Indication: HYPERCALCAEMIA
     Route: 041
     Dates: start: 20130330
  4. ATARAX [Concomitant]
     Route: 048
     Dates: start: 20130326
  5. PARACETAMOL [Concomitant]
     Route: 048
     Dates: start: 20130326
  6. CODEINE PHOSPHATE [Concomitant]
     Dosage: DOSE:1 MILLIGRAM(S)/MILLILITRE
     Route: 048
     Dates: start: 20130326, end: 20130328

REACTIONS (2)
  - Agitation [Recovered/Resolved]
  - Incoherent [Recovered/Resolved]
